FAERS Safety Report 13095174 (Version 1)
Quarter: 2017Q1

REPORT INFORMATION
  Report Type: Spontaneous
  Country: US (occurrence: US)
  Receive Date: 20170107
  Receipt Date: 20170107
  Transmission Date: 20170428
  Serious: No
  Sender: FDA-Public Use
  Company Number: US-TEVA-724715ACC

PATIENT
  Age: 52 Year
  Sex: Male

DRUGS (10)
  1. MULTIVIT [Concomitant]
     Active Substance: VITAMINS
     Dates: start: 20160908
  2. ARTHRITIS PAIN [Concomitant]
     Active Substance: ACETAMINOPHEN
     Indication: ARTHRITIS
     Dates: start: 20160425
  3. OMEPRAZOLE. [Concomitant]
     Active Substance: OMEPRAZOLE
     Dates: start: 20160822
  4. OYSCO 500+ D [Concomitant]
     Dates: start: 20160912
  5. METOPROLOL. [Concomitant]
     Active Substance: METOPROLOL
     Dates: start: 20160810
  6. BACLOFEN. [Concomitant]
     Active Substance: BACLOFEN
     Dates: start: 20160728
  7. ZETIA [Concomitant]
     Active Substance: EZETIMIBE
     Dates: start: 20160916
  8. COPAXONE [Suspect]
     Active Substance: GLATIRAMER ACETATE
     Indication: MULTIPLE SCLEROSIS
     Route: 058
     Dates: start: 20160305
  9. OMEGA-3-ACID [Concomitant]
     Dates: start: 20160516
  10. AMPYRA [Concomitant]
     Active Substance: DALFAMPRIDINE
     Dates: start: 20160310

REACTIONS (1)
  - Muscular weakness [Unknown]

NARRATIVE: CASE EVENT DATE: 201604
